FAERS Safety Report 5142975-1 (Version None)
Quarter: 2006Q4

REPORT INFORMATION
  Report Type: 
  Country: None (occurrence: None)
  Receive Date: 20061103
  Receipt Date: 20061023
  Transmission Date: 20070319
  Serious: Yes (Hospitalization)
  Sender: FDA-Public Use
  Company Number: US-JNJFOC-20060906767

PATIENT
  Sex: Female
  Weight: 66.68 kg

DRUGS (11)
  1. DOXIL [Suspect]
     Indication: MULTIPLE MYELOMA
     Route: 042
  2. VELCADE [Suspect]
     Indication: MULTIPLE MYELOMA
     Route: 042
  3. DEXAMETHOSONE [Suspect]
     Indication: MULTIPLE MYELOMA
     Route: 048
  4. OXYCODONE HCL [Concomitant]
     Indication: DRUG USE FOR UNKNOWN INDICATION
  5. LASIX [Concomitant]
     Indication: DRUG USE FOR UNKNOWN INDICATION
  6. PROTONIX [Concomitant]
     Indication: DRUG USE FOR UNKNOWN INDICATION
  7. ACYCLOVIR [Concomitant]
     Indication: DRUG USE FOR UNKNOWN INDICATION
  8. B-6 [Concomitant]
     Indication: DRUG USE FOR UNKNOWN INDICATION
  9. PAIN PILLS [Concomitant]
     Indication: ANALGESIC EFFECT
  10. LOVENOX [Concomitant]
     Indication: DRUG USE FOR UNKNOWN INDICATION
  11. POTASSIUM ACETATE [Concomitant]
     Indication: DRUG USE FOR UNKNOWN INDICATION

REACTIONS (18)
  - AGITATION [None]
  - ALANINE AMINOTRANSFERASE INCREASED [None]
  - ASPARTATE AMINOTRANSFERASE INCREASED [None]
  - BLOOD GLUCOSE INCREASED [None]
  - BLOOD POTASSIUM DECREASED [None]
  - BLOOD PRESSURE DIASTOLIC INCREASED [None]
  - DELUSION [None]
  - FLAT AFFECT [None]
  - GRANDIOSITY [None]
  - HALLUCINATION, VISUAL [None]
  - HEART RATE INCREASED [None]
  - INSOMNIA [None]
  - LIVER FUNCTION TEST ABNORMAL [None]
  - LOGORRHOEA [None]
  - MANIA [None]
  - PARANOIA [None]
  - PRESSURE OF SPEECH [None]
  - TANGENTIALITY [None]
